FAERS Safety Report 4849984-8 (Version None)
Quarter: 2005Q4

REPORT INFORMATION
  Report Type: 
  Country: None (occurrence: None)
  Receive Date: 20051123
  Receipt Date: 20050120
  Transmission Date: 20060501
  Serious: Yes (Other)
  Sender: FDA-Public Use
  Company Number: 2005017728

PATIENT
  Age: 16 Year
  Sex: Female
  Weight: 65.7716 kg

DRUGS (5)
  1. LIPITOR [Suspect]
     Indication: BLOOD CHOLESTEROL INCREASED
     Dosage: 30 MG (20 MG,ONE AND HALF TABLETS DAILY),ORAL
     Route: 048
     Dates: start: 20020101
  2. LISINOPRIL [Concomitant]
  3. ESTROGENS (ESTROGENS) [Concomitant]
  4. ALL OTHER THERAPEUTIC PRODUCTS (ALL OTHER THERAPEUTIC PRODUCTS) [Concomitant]
  5. HOMEOPATIC PREPARATION (HOMEOPATIC PREPARATION) [Concomitant]

REACTIONS (1)
  - PANCREATITIS [None]
